FAERS Safety Report 12199487 (Version 3)
Quarter: 2016Q2

REPORT INFORMATION
  Report Type: Spontaneous
  Country: US (occurrence: US)
  Receive Date: 20160322
  Receipt Date: 20160506
  Transmission Date: 20160815
  Serious: Yes (Other)
  Sender: FDA-Public Use
  Company Number: PHHY2016US032076

PATIENT
  Age: 7 Year
  Sex: Male

DRUGS (4)
  1. TRILEPTAL [Suspect]
     Active Substance: OXCARBAZEPINE
     Indication: PRODUCT USED FOR UNKNOWN INDICATION
     Route: 065
  2. SENNA [Suspect]
     Active Substance: SENNA LEAF\SENNOSIDES\SENNOSIDES A AND B
     Indication: PRODUCT USED FOR UNKNOWN INDICATION
     Route: 065
  3. MIRALAX [Suspect]
     Active Substance: POLYETHYLENE GLYCOL 3350
     Indication: PRODUCT USED FOR UNKNOWN INDICATION
     Route: 065
  4. LIORESAL [Suspect]
     Active Substance: BACLOFEN
     Indication: MUSCLE SPASTICITY
     Dosage: 153 UG, QD (MINIMUM RATE)
     Route: 037

REACTIONS (11)
  - Muscle tightness [Unknown]
  - Medical device site extravasation [Unknown]
  - Post lumbar puncture syndrome [Unknown]
  - Muscle spasticity [Unknown]
  - Constipation [Unknown]
  - No therapeutic response [Unknown]
  - Pruritus [Unknown]
  - Medical device site swelling [Unknown]
  - Medical device site rash [Unknown]
  - Drug withdrawal syndrome [Recovered/Resolved]
  - Therapeutic response decreased [Unknown]

NARRATIVE: CASE EVENT DATE: 201603
